FAERS Safety Report 4664336-1 (Version None)
Quarter: 2005Q2

REPORT INFORMATION
  Report Type: 
  Country: None (occurrence: None)
  Receive Date: 20050518
  Receipt Date: 20050512
  Transmission Date: 20051028
  Serious: Yes (Hospitalization)
  Sender: FDA-Public Use
  Company Number: US-BRISTOL-MYERS SQUIBB COMPANY-12965976

PATIENT
  Age: 79 Year
  Sex: Female

DRUGS (10)
  1. METFORMIN HCL [Suspect]
  2. ATORVASTATIN CALCIUM [Concomitant]
  3. ALPRAZOLAM [Concomitant]
  4. DIGOXIN [Concomitant]
  5. MIRTAZAPINE [Concomitant]
  6. EFFEXOR [Concomitant]
  7. SUDAFED 12 HOUR [Concomitant]
  8. NITROGLYCERIN [Concomitant]
  9. REGULAR INSULIN [Concomitant]
  10. FUROSEMIDE [Concomitant]

REACTIONS (1)
  - THROMBOCYTOPENIA [None]
